FAERS Safety Report 9461820 (Version 1)
Quarter: 2013Q3

REPORT INFORMATION
  Report Type: Spontaneous
  Country: US (occurrence: None)
  Receive Date: 20130815
  Receipt Date: 20130815
  Transmission Date: 20140515
  Serious: Yes (Other)
  Sender: FDA-Public Use
  Company Number: None

PATIENT
  Age: 39 Year
  Sex: Female
  Weight: 63.5 kg

DRUGS (4)
  1. CREST PRO-HEALTH [Suspect]
     Indication: DENTAL CARE
     Dates: start: 20130215, end: 20130812
  2. PRE-NATAL VITAMIN [Concomitant]
  3. VITAMIN C [Concomitant]
  4. VITAMIN D [Concomitant]

REACTIONS (1)
  - Tooth discolouration [None]
